FAERS Safety Report 7153828-1 (Version None)
Quarter: 2010Q4

REPORT INFORMATION
  Report Type: 
  Country: None (occurrence: None)
  Receive Date: 20101213
  Receipt Date: 20100921
  Transmission Date: 20110411
  Serious: No
  Sender: FDA-Public Use
  Company Number: US-ABBOTT-10P-163-0672047-00

PATIENT
  Age: 44 Year
  Sex: Female

DRUGS (1)
  1. MERIDIA [Suspect]
     Indication: WEIGHT CONTROL
     Dates: start: 20100827, end: 20100829

REACTIONS (6)
  - FEELING ABNORMAL [None]
  - FEELING JITTERY [None]
  - INCREASED APPETITE [None]
  - IRRITABILITY [None]
  - NERVOUSNESS [None]
  - PERSONALITY CHANGE [None]
